FAERS Safety Report 8150670-X (Version None)
Quarter: 2012Q1

REPORT INFORMATION
  Report Type: 
  Country: None (occurrence: None)
  Receive Date: 20120220
  Receipt Date: 20120215
  Transmission Date: 20120608
  Serious: Yes (Death, Other)
  Sender: FDA-Public Use
  Company Number: PHEH2012US002910

PATIENT
  Age: 86 Year
  Sex: Male

DRUGS (1)
  1. GLEEVEC [Suspect]
     Dosage: 400 MG, QD

REACTIONS (4)
  - SYNCOPE [None]
  - FALL [None]
  - CARDIAC ARREST [None]
  - HAEMORRHAGE INTRACRANIAL [None]
